FAERS Safety Report 8733460 (Version 2)
Quarter: 2012Q4

REPORT INFORMATION
  Report Type: 
  Country: US (occurrence: US)
  Receive Date: 20120821
  Receipt Date: 20120831
  Transmission Date: 20130627
  Serious: No
  Sender: FDA-Public Use
  Company Number: US-PFIZER INC-2012201499

PATIENT
  Age: 69 Year
  Sex: Female
  Weight: 60.77 kg

DRUGS (3)
  1. ADVIL [Suspect]
     Indication: HEADACHE
     Dosage: UNK, as needed
     Route: 048
     Dates: start: 1991
  2. ADVIL [Suspect]
     Indication: MIGRAINE
  3. LEVOTHYROXINE [Concomitant]
     Indication: BASEDOW^S DISEASE
     Dosage: UNK

REACTIONS (2)
  - Pain in extremity [Recovered/Resolved]
  - Insomnia [Recovered/Resolved]
